FAERS Safety Report 8998215 (Version 1)
Quarter: 2013Q1

REPORT INFORMATION
  Report Type: Report from Study
  Country: US (occurrence: US)
  Receive Date: 20130104
  Receipt Date: 20130104
  Transmission Date: 20140127
  Serious: No
  Sender: FDA-Public Use
  Company Number: US-VERTEX PHARMACEUTICALS INC.-2013-000122

PATIENT
  Sex: Male
  Weight: 86 kg

DRUGS (4)
  1. VX-950 (TELAPREVIR) [Suspect]
     Indication: HEPATITIS C
     Dosage: 750 MG, TID
     Route: 048
  2. PEGASYS [Suspect]
     Indication: HEPATITIS C
     Dosage: 180 MCG/M
  3. RIBAPAK [Suspect]
     Indication: HEPATITIS C
     Dosage: 1200/DAY
  4. VITAMIN D /00107901/ [Concomitant]
     Dosage: 50000 UNIT

REACTIONS (3)
  - Cough [Unknown]
  - Fatigue [Unknown]
  - Nausea [Unknown]
